FAERS Safety Report 5565940-9 (Version None)
Quarter: 2007Q4

REPORT INFORMATION
  Report Type: 
  Country: None (occurrence: None)
  Receive Date: 20071219
  Receipt Date: 20071211
  Transmission Date: 20080405
  Serious: Yes (Hospitalization)
  Sender: FDA-Public Use
  Company Number: PHHO2007KR04327

PATIENT
  Age: 63 Year
  Sex: Female
  Weight: 59 kg

DRUGS (5)
  1. AMN107 [Suspect]
     Indication: CHRONIC MYELOID LEUKAEMIA
     Dosage: 400 MG, BID
     Route: 048
     Dates: start: 20070617
  2. AMN107 [Suspect]
     Dosage: 400 MG, BID
     Route: 048
     Dates: end: 20071120
  3. AMN107 [Suspect]
     Dosage: 800 MG, QD
     Route: 048
     Dates: start: 20061121, end: 20070603
  4. INSULIN ASPART [Concomitant]
     Indication: DIABETES MELLITUS
  5. CARVEDILOL [Concomitant]
     Indication: HYPERTENSION

REACTIONS (11)
  - ALANINE AMINOTRANSFERASE INCREASED [None]
  - CHEILITIS [None]
  - CHEST PAIN [None]
  - COUGH [None]
  - DYSPNOEA [None]
  - FLANK PAIN [None]
  - HAEMOGLOBIN DECREASED [None]
  - MUSCULOSKELETAL PAIN [None]
  - PNEUMONIA [None]
  - PRODUCTIVE COUGH [None]
  - PYREXIA [None]
